FAERS Safety Report 15956148 (Version 8)
Quarter: 2019Q4

REPORT INFORMATION
  Report Type: Report from Study
  Country: CO (occurrence: CO)
  Receive Date: 20190213
  Receipt Date: 20191206
  Transmission Date: 20200122
  Serious: Yes (Hospitalization, Other)
  Sender: FDA-Public Use
  Company Number: CO-AMGEN-COLSL2018138108

PATIENT
  Age: 31 Year
  Sex: Male

DRUGS (4)
  1. NPLATE [Suspect]
     Active Substance: ROMIPLOSTIM
     Dosage: 500 MICROGRAM, QWK
     Route: 058
     Dates: start: 20190306
  2. NPLATE [Suspect]
     Active Substance: ROMIPLOSTIM
     Dosage: 250 MICROGRAM, QWK
     Route: 058
  3. NPLATE [Suspect]
     Active Substance: ROMIPLOSTIM
     Indication: IMMUNE THROMBOCYTOPENIC PURPURA
     Dosage: 750 MICROGRAM, QWK
     Route: 058
     Dates: start: 20180727
  4. NPLATE [Suspect]
     Active Substance: ROMIPLOSTIM
     Dosage: 200 MICROGRAM, QWK
     Route: 058

REACTIONS (7)
  - Influenza [Recovering/Resolving]
  - Thrombocytosis [Not Recovered/Not Resolved]
  - Petechiae [Recovered/Resolved]
  - Thrombocytopenia [Not Recovered/Not Resolved]
  - Product prescribing issue [Recovered/Resolved]
  - Gingival bleeding [Recovered/Resolved]
  - Anaphylactic transfusion reaction [Not Recovered/Not Resolved]

NARRATIVE: CASE EVENT DATE: 20180918
